FAERS Safety Report 6784421-8 (Version None)
Quarter: 2010Q2

REPORT INFORMATION
  Report Type: 
  Country: None (occurrence: None)
  Receive Date: 20100617
  Receipt Date: 20100602
  Transmission Date: 20101027
  Serious: Yes (Other)
  Sender: FDA-Public Use
  Company Number: 20108893

PATIENT
  Age: 39 Year
  Sex: Male

DRUGS (1)
  1. LIORESAL [Suspect]
     Indication: MUSCLE SPASTICITY
     Dosage: DAILY, INTRATHECAL
     Route: 037

REACTIONS (8)
  - DEVICE BREAKAGE [None]
  - DEVICE OCCLUSION [None]
  - DRUG WITHDRAWAL SYNDROME [None]
  - HEADACHE [None]
  - IMPLANT SITE EFFUSION [None]
  - IMPLANT SITE PAIN [None]
  - IMPLANT SITE SWELLING [None]
  - MEDICAL DEVICE COMPLICATION [None]
